FAERS Safety Report 12728097 (Version 7)
Quarter: 2023Q1

REPORT INFORMATION
  Report Type: Spontaneous
  Country: US (occurrence: US)
  Receive Date: 20160909
  Receipt Date: 20230321
  Transmission Date: 20230418
  Serious: Yes (Life-Threatening, Hospitalization, Other)
  Sender: FDA-Public Use
  Company Number: US-PFIZER INC-2016415626

PATIENT
  Age: 74 Year
  Sex: Female

DRUGS (1)
  1. XELJANZ XR [Suspect]
     Active Substance: TOFACITINIB CITRATE
     Indication: Arthritis
     Dosage: 11 MG, DAILY
     Route: 048

REACTIONS (9)
  - Suicidal behaviour [Unknown]
  - Musculoskeletal stiffness [Unknown]
  - Dementia [Unknown]
  - Intervertebral disc operation [Unknown]
  - Skin disorder [Unknown]
  - Fatigue [Unknown]
  - Hypoacusis [Unknown]
  - Gait disturbance [Unknown]
  - Oropharyngeal pain [Unknown]
